FAERS Safety Report 25439678 (Version 1)
Quarter: 2025Q2

REPORT INFORMATION
  Report Type: Spontaneous
  Country: US (occurrence: US)
  Receive Date: 20250616
  Receipt Date: 20250616
  Transmission Date: 20250717
  Serious: No
  Sender: PFIZER
  Company Number: US-PFIZER INC-202500119984

PATIENT
  Age: 75 Year
  Sex: Female

DRUGS (13)
  1. IBRANCE [Suspect]
     Active Substance: PALBOCICLIB
     Dates: start: 20250130
  2. IBRANCE [Suspect]
     Active Substance: PALBOCICLIB
     Route: 048
     Dates: end: 20250605
  3. ANASTROZOLE [Concomitant]
     Active Substance: ANASTROZOLE
  4. CARVEDILOL [Concomitant]
     Active Substance: CARVEDILOL
  5. EMETROL [FRUCTOSE;GLUCOSE;PHOSPHORIC ACID] [Concomitant]
  6. ICOSAPENT [Concomitant]
     Active Substance: ICOSAPENT
  7. JARDIANCE [Concomitant]
     Active Substance: EMPAGLIFLOZIN
  8. LEVOTHYROXINE [Concomitant]
     Active Substance: LEVOTHYROXINE
  9. LOSARTAN [Concomitant]
     Active Substance: LOSARTAN
  10. NAPROXEN [Concomitant]
     Active Substance: NAPROXEN
  11. TRAMADOL [Concomitant]
     Active Substance: TRAMADOL
  12. TYLENOL ARTHRITIS PAIN [Concomitant]
     Active Substance: ACETAMINOPHEN
  13. XGEVA [Concomitant]
     Active Substance: DENOSUMAB

REACTIONS (8)
  - Nausea [Recovering/Resolving]
  - Asthenia [Recovering/Resolving]
  - Dysphagia [Recovering/Resolving]
  - Vomiting [Recovering/Resolving]
  - White blood cell count decreased [Recovering/Resolving]
  - Red blood cell count decreased [Recovering/Resolving]
  - Dyspnoea [Recovering/Resolving]
  - Feeding disorder [Recovering/Resolving]

NARRATIVE: CASE EVENT DATE: 20250527
